FAERS Safety Report 5285245-3 (Version None)
Quarter: 2007Q1

REPORT INFORMATION
  Report Type: 
  Country: None (occurrence: None)
  Receive Date: 20061229
  Receipt Date: 20060829
  Transmission Date: 20070707
  Serious: Yes (Other)
  Sender: FDA-Public Use
  Company Number: 2006UW17068

PATIENT
  Age: 49 Year
  Sex: Male
  Weight: 90.718 kg

DRUGS (1)
  1. CRESTOR [Suspect]
     Indication: HYPERCHOLESTEROLAEMIA
     Dosage: 5 MG PO
     Route: 047
     Dates: start: 20040101

REACTIONS (4)
  - CHAPPED LIPS [None]
  - LIP SWELLING [None]
  - ORAL DISCOMFORT [None]
  - RASH [None]
